FAERS Safety Report 7773870-7 (Version None)
Quarter: 2011Q3

REPORT INFORMATION
  Report Type: 
  Country: None (occurrence: None)
  Receive Date: 20110923
  Receipt Date: 20110920
  Transmission Date: 20111222
  Serious: Yes (Hospitalization, Other)
  Sender: FDA-Public Use
  Company Number: US-PFIZER INC-2011224025

PATIENT
  Sex: Female

DRUGS (2)
  1. DEPO-PROVERA [Suspect]
     Indication: ENDOMETRIOSIS
  2. DEPO-PROVERA [Suspect]
     Indication: CONTRACEPTION
     Dosage: UNK

REACTIONS (3)
  - LARGE INTESTINAL ULCER [None]
  - COLITIS ISCHAEMIC [None]
  - GASTROENTERITIS ESCHERICHIA COLI [None]
